FAERS Safety Report 20757438 (Version 1)
Quarter: 2022Q2

REPORT INFORMATION
  Report Type: Spontaneous
  Country: US (occurrence: None)
  Receive Date: 20220427
  Receipt Date: 20220427
  Transmission Date: 20220721
  Serious: Yes (Death)
  Sender: FDA-Public Use
  Company Number: None

PATIENT
  Age: 82 Year
  Sex: Female
  Weight: 73.71 kg

DRUGS (9)
  1. IBRANCE [Suspect]
     Active Substance: PALBOCICLIB
     Indication: Breast cancer female
     Dosage: OTHER FREQUENCY : 21D ON 7D OFF;?
  2. ATORVASTATIN [Concomitant]
  3. MINERALS\VITAMINS [Concomitant]
     Active Substance: MINERALS\VITAMINS
  4. DONEPEZIL [Concomitant]
     Active Substance: DONEPEZIL
  5. ELIQUIS [Concomitant]
  6. LETROZOLE [Concomitant]
     Active Substance: LETROZOLE
  7. LOSARTAN [Concomitant]
     Active Substance: LOSARTAN
  8. MEMANTINE [Concomitant]
     Active Substance: MEMANTINE
  9. VITAMIN D3 [Concomitant]
     Active Substance: CHOLECALCIFEROL

REACTIONS (1)
  - Death [None]

NARRATIVE: CASE EVENT DATE: 20220422
